FAERS Safety Report 4414699-7 (Version None)
Quarter: 2004Q3

REPORT INFORMATION
  Report Type: 
  Country: None (occurrence: None)
  Receive Date: 20040729
  Receipt Date: 20040713
  Transmission Date: 20050211
  Serious: Yes (Hospitalization)
  Sender: FDA-Public Use
  Company Number: 201372

PATIENT
  Age: 41 Year
  Sex: Female
  Weight: 48.9885 kg

DRUGS (8)
  1. AVONEX [Suspect]
     Indication: MULTIPLE SCLEROSIS
     Dosage: 30 MCG QW IM
     Route: 030
     Dates: start: 20000101
  2. AVONEX [Suspect]
     Indication: MULTIPLE SCLEROSIS
     Dosage: 7.5 MCG QW IM
     Route: 030
     Dates: start: 20040509, end: 20040509
  3. AVONEX [Suspect]
     Indication: MULTIPLE SCLEROSIS
     Dosage: 15 MCG QW IM
     Route: 030
     Dates: start: 20040516, end: 20040530
  4. AVONEX [Suspect]
     Indication: MULTIPLE SCLEROSIS
     Dosage: 30 MCG QW IM
     Route: 030
     Dates: start: 20040606
  5. CELEXA [Concomitant]
  6. BACLOFEN [Concomitant]
  7. CLONAZEPAM [Concomitant]
  8. ZANAFLEX [Concomitant]

REACTIONS (10)
  - ASTHENIA [None]
  - EATING DISORDER [None]
  - FATIGUE [None]
  - HYPOTENSION [None]
  - INJECTION SITE HAEMORRHAGE [None]
  - INTRACRANIAL ANEURYSM [None]
  - LETHARGY [None]
  - LOSS OF CONSCIOUSNESS [None]
  - MULTIPLE SCLEROSIS RELAPSE [None]
  - POST PROCEDURAL COMPLICATION [None]
